FAERS Safety Report 7116760-5 (Version None)
Quarter: 2010Q4

REPORT INFORMATION
  Report Type: 
  Country: None (occurrence: None)
  Receive Date: 20101122
  Receipt Date: 20101110
  Transmission Date: 20110411
  Serious: Yes (Hospitalization)
  Sender: FDA-Public Use
  Company Number: GXKR2010ES12725

PATIENT
  Age: 36 Year
  Sex: Female

DRUGS (1)
  1. ITRACONAZOLE [Suspect]
     Indication: ONYCHOMYCOSIS
     Dosage: 200 MG, Q12H
     Route: 048
     Dates: start: 20090425, end: 20090501

REACTIONS (1)
  - ATRIOVENTRICULAR BLOCK [None]
